FAERS Safety Report 16608422 (Version 1)
Quarter: 2019Q3

REPORT INFORMATION
  Report Type: Spontaneous
  Country: US (occurrence: US)
  Receive Date: 20190722
  Receipt Date: 20190722
  Transmission Date: 20191004
  Serious: Yes (Other)
  Sender: FDA-Public Use
  Company Number: US-BAYER-2019-132555

PATIENT
  Age: 63 Year
  Sex: Male

DRUGS (3)
  1. ACETYLSALICYLIC ACID (PAIN AND FEVER) [Suspect]
     Active Substance: ASPIRIN
     Indication: CHEST PAIN
     Dosage: UNK
  2. HEPARIN [Interacting]
     Active Substance: HEPARIN SODIUM
     Indication: CHEST PAIN
  3. PLAVIX [Interacting]
     Active Substance: CLOPIDOGREL BISULFATE
     Indication: CHEST PAIN

REACTIONS (3)
  - Mediastinal haematoma [None]
  - Hypovolaemic shock [None]
  - Labelled drug-drug interaction medication error [None]
